FAERS Safety Report 15848055 (Version 3)
Quarter: 2023Q2

REPORT INFORMATION
  Report Type: Spontaneous
  Country: RO (occurrence: RO)
  Receive Date: 20190121
  Receipt Date: 20230406
  Transmission Date: 20230722
  Serious: Yes (Hospitalization, Other)
  Sender: FDA-Public Use
  Company Number: RO-PFIZER INC-2018267398

PATIENT
  Age: 43 Year
  Sex: Female

DRUGS (13)
  1. ASPIRIN [Suspect]
     Active Substance: ASPIRIN
     Indication: Product used for unknown indication
     Dosage: UNK
     Route: 065
  2. BISOPROLOL [Suspect]
     Active Substance: BISOPROLOL
     Indication: Product used for unknown indication
     Dosage: UNK
     Route: 065
  3. ATORVASTATIN [Suspect]
     Active Substance: ATORVASTATIN
     Indication: Product used for unknown indication
     Dosage: UNK
     Route: 065
  4. FUROSEMIDE [Suspect]
     Active Substance: FUROSEMIDE
     Indication: Product used for unknown indication
     Dosage: UNK
     Route: 065
  5. DOXORUBICIN [Suspect]
     Active Substance: DOXORUBICIN
     Indication: Hodgkin^s disease nodular sclerosis stage II
     Dosage: CYCLIC (TWO CYCLES OF AVD AND LOMUSTINE)
     Route: 065
  6. DOXORUBICIN [Suspect]
     Active Substance: DOXORUBICIN
     Dosage: CYCLIC (REPORTED AS LESS THAN 300 MG/M2)
     Route: 065
  7. LEVOTHYROXINE [Suspect]
     Active Substance: LEVOTHYROXINE
     Indication: Product used for unknown indication
     Dosage: UNK
     Route: 065
  8. SPIRONOLACTONE [Suspect]
     Active Substance: SPIRONOLACTONE
     Indication: Product used for unknown indication
     Dosage: UNK
     Route: 065
  9. PERINDOPRIL [Suspect]
     Active Substance: PERINDOPRIL
     Indication: Product used for unknown indication
     Dosage: UNK
     Route: 065
  10. VINBLASTINE [Suspect]
     Active Substance: VINBLASTINE
     Indication: Hodgkin^s disease nodular sclerosis stage II
     Dosage: CYCLIC (TWO CYCLES OF AVD AND LOMUSTINE)
     Route: 065
  11. DACARBAZINE [Suspect]
     Active Substance: DACARBAZINE
     Indication: Hodgkin^s disease nodular sclerosis stage II
     Dosage: CYCLIC (TWO CYCLES OF ABVD AND LOMUSTINE)
     Route: 065
  12. BLEOMYCIN [Suspect]
     Active Substance: BLEOMYCIN SULFATE
     Indication: Hodgkin^s disease nodular sclerosis stage II
     Dosage: CYCLIC (TWO CYCLES OF ABVD)
     Route: 065
  13. LOMUSTINE [Suspect]
     Active Substance: LOMUSTINE
     Indication: Hodgkin^s disease nodular sclerosis stage II
     Dosage: CYCLIC (TWO CYCLES OF AVD AND LOMUSTINE)
     Route: 065

REACTIONS (12)
  - Pericarditis constrictive [Recovering/Resolving]
  - Bifascicular block [Unknown]
  - Left ventricular dysfunction [Unknown]
  - Pericardial effusion [Recovered/Resolved]
  - Electrocardiogram QT prolonged [Unknown]
  - Cardiac valve thickening [Unknown]
  - Pulmonary fibrosis [Unknown]
  - Cardiac failure [Unknown]
  - Cardiac tamponade [Recovered/Resolved]
  - Cardiovascular disorder [Unknown]
  - Cough [Unknown]
  - Pulmonary toxicity [Unknown]

NARRATIVE: CASE EVENT DATE: 20020401
